FAERS Safety Report 21283258 (Version 1)
Quarter: 2022Q3

REPORT INFORMATION
  Report Type: Spontaneous
  Country: US (occurrence: US)
  Receive Date: 20220901
  Receipt Date: 20220901
  Transmission Date: 20221027
  Serious: No
  Sender: FDA-Public Use
  Company Number: US-Teikoku Pharma USA-TPU2022-00742

PATIENT
  Sex: Female
  Weight: 78.088 kg

DRUGS (6)
  1. LIDODERM [Suspect]
     Active Substance: LIDOCAINE
     Indication: Intervertebral disc protrusion
     Route: 061
     Dates: start: 2015
  2. LIDODERM [Suspect]
     Active Substance: LIDOCAINE
     Indication: Muscle spasms
  3. LIDOCAINE PATCH [Suspect]
     Active Substance: LIDOCAINE
     Indication: Intervertebral disc protrusion
     Route: 061
     Dates: start: 2015
  4. LIDOCAINE PATCH [Suspect]
     Active Substance: LIDOCAINE
     Indication: Muscle spasms
  5. LEVOTHYROXINE [Concomitant]
     Active Substance: LEVOTHYROXINE
     Indication: Thyroid disorder
     Route: 048
  6. Levoceterizine [Concomitant]
     Indication: Hypersensitivity
     Route: 048

REACTIONS (1)
  - Dermatitis allergic [Unknown]
